FAERS Safety Report 9651072 (Version 1)
Quarter: 2013Q4

REPORT INFORMATION
  Report Type: Spontaneous
  Country: US (occurrence: US)
  Receive Date: 20131029
  Receipt Date: 20131029
  Transmission Date: 20140711
  Serious: Yes (Hospitalization)
  Sender: FDA-Public Use
  Company Number: PHEH2013US022347

PATIENT
  Sex: Male

DRUGS (1)
  1. COMTAN [Suspect]
     Indication: PARKINSON^S DISEASE
     Dosage: UNK UKN, UNK

REACTIONS (3)
  - Cystitis [Unknown]
  - Dysphagia [Unknown]
  - Wrong technique in drug usage process [Unknown]
